FAERS Safety Report 5173187-3 (Version None)
Quarter: 2006Q4

REPORT INFORMATION
  Report Type: 
  Country: None (occurrence: None)
  Receive Date: 20061214
  Receipt Date: 20060829
  Transmission Date: 20070319
  Serious: Yes (Other)
  Sender: FDA-Public Use
  Company Number: DE-BAYER-200611128BVD

PATIENT

DRUGS (1)
  1. SORAFENIB [Suspect]
     Indication: UNEVALUABLE EVENT
     Route: 048

REACTIONS (2)
  - ARRHYTHMIA [None]
  - HYPERTENSIVE CRISIS [None]
